FAERS Safety Report 17295122 (Version 1)
Quarter: 2020Q1

REPORT INFORMATION
  Report Type: Spontaneous
  Country: US (occurrence: US)
  Receive Date: 20200121
  Receipt Date: 20200121
  Transmission Date: 20200409
  Serious: Yes (Other)
  Sender: FDA-Public Use
  Company Number: US-009507513-2001USA006639

PATIENT
  Age: 61 Year
  Sex: Male

DRUGS (1)
  1. KEYTRUDA [Suspect]
     Active Substance: PEMBROLIZUMAB
     Indication: RENAL CANCER
     Dosage: UNK
     Dates: end: 201903

REACTIONS (6)
  - Nephrectomy [Not Recovered/Not Resolved]
  - Malignant neoplasm progression [Not Recovered/Not Resolved]
  - Colectomy [Not Recovered/Not Resolved]
  - Product use in unapproved indication [Unknown]
  - Splenectomy [Not Recovered/Not Resolved]
  - Pancreatectomy [Not Recovered/Not Resolved]

NARRATIVE: CASE EVENT DATE: 201906
